FAERS Safety Report 11986831 (Version 2)
Quarter: 2016Q1

REPORT INFORMATION
  Report Type: Spontaneous
  Country: US (occurrence: US)
  Receive Date: 20160202
  Receipt Date: 20160203
  Transmission Date: 20160526
  Serious: No
  Sender: FDA-Public Use
  Company Number: US-UCBSA-2014014016

PATIENT
  Sex: Female

DRUGS (4)
  1. KEPPRA XR [Suspect]
     Active Substance: LEVETIRACETAM
     Indication: PRODUCT USED FOR UNKNOWN INDICATION
     Dosage: UNK, 1500 MG
  2. KEPPRA [Suspect]
     Active Substance: LEVETIRACETAM
     Indication: PRODUCT USED FOR UNKNOWN INDICATION
     Dosage: INCREASED LEVETIRACETAM DOSE
  3. DILANTIN [Concomitant]
     Active Substance: PHENYTOIN
     Dosage: START TO DECREASE THE DOSE
  4. DILANTIN [Concomitant]
     Active Substance: PHENYTOIN
     Indication: PRODUCT USED FOR UNKNOWN INDICATION
     Dosage: 350 MG

REACTIONS (7)
  - Adverse drug reaction [Unknown]
  - Asthenia [Unknown]
  - Unevaluable event [Unknown]
  - Chills [Unknown]
  - Fatigue [Unknown]
  - Abnormal dreams [Unknown]
  - Pain [Unknown]
